FAERS Safety Report 5383021-4 (Version None)
Quarter: 2007Q2

REPORT INFORMATION
  Report Type: 
  Country: None (occurrence: None)
  Receive Date: 20070629
  Receipt Date: 20061220
  Transmission Date: 20071010
  Serious: Yes (Hospitalization)
  Sender: FDA-Public Use
  Company Number: US200612003732

PATIENT
  Age: 52 Year
  Sex: Female

DRUGS (1)
  1. HUMALOG [Suspect]
     Indication: DIABETES MELLITUS

REACTIONS (8)
  - CARDIAC FAILURE [None]
  - COAGULOPATHY [None]
  - DIABETES MELLITUS [None]
  - DIABETIC COMA [None]
  - HEPATIC FAILURE [None]
  - MULTI-ORGAN FAILURE [None]
  - PNEUMONIA [None]
  - RENAL FAILURE [None]
